FAERS Safety Report 21655247 (Version 1)
Quarter: 2022Q4

REPORT INFORMATION
  Report Type: Report from Study
  Country: KR (occurrence: KR)
  Receive Date: 20221129
  Receipt Date: 20221129
  Transmission Date: 20230113
  Serious: Yes (Death, Hospitalization, Other)
  Sender: FDA-Public Use
  Company Number: KR-BRISTOL-MYERS SQUIBB COMPANY-2022-144127

PATIENT
  Age: 52 Year
  Sex: Male

DRUGS (2)
  1. YERVOY [Suspect]
     Active Substance: IPILIMUMAB
     Indication: Hepatocellular carcinoma
     Dosage: DOSE: 200/40 MG/ML, FREQUENCY: ONCE
     Route: 042
     Dates: start: 20221009, end: 20221009
  2. OPDIVO [Suspect]
     Active Substance: NIVOLUMAB
     Indication: Hepatocellular carcinoma
     Dosage: DOSE: 80/8 MG/ML, FREQUENCY ONCE
     Route: 042
     Dates: start: 20221009, end: 20221009

REACTIONS (2)
  - Death [Fatal]
  - Off label use [Unknown]
